FAERS Safety Report 9241995 (Version 1)
Quarter: 2013Q2

REPORT INFORMATION
  Report Type: Report from Study
  Country: FR (occurrence: FR)
  Receive Date: 20130419
  Receipt Date: 20130419
  Transmission Date: 20140414
  Serious: Yes (Death, Hospitalization)
  Sender: FDA-Public Use
  Company Number: FR-BAYER-2013-048916

PATIENT
  Age: 62 Year
  Sex: Female
  Weight: 59 kg

DRUGS (3)
  1. REGORAFENIB [Suspect]
     Indication: COLORECTAL CANCER METASTATIC
     Dosage: CYCLE 1, 160MG DAILY
     Route: 048
     Dates: start: 20130329, end: 20130411
  2. INNOHEP [Concomitant]
     Indication: AORTIC VALVE DISEASE
     Dosage: DAILY DOSE .5 ML
     Route: 058
     Dates: start: 20130319, end: 20130412
  3. INNOHEP [Concomitant]
     Indication: MITRAL VALVE DISEASE

REACTIONS (1)
  - Cardiac failure [Fatal]
